FAERS Safety Report 4478435-0 (Version None)
Quarter: 2004Q4

REPORT INFORMATION
  Report Type: 
  Country: None (occurrence: None)
  Receive Date: 20041013
  Receipt Date: 20041005
  Transmission Date: 20050328
  Serious: Yes (Hospitalization)
  Sender: FDA-Public Use
  Company Number: HQWYE636407OCT04

PATIENT
  Age: 57 Year
  Sex: Male

DRUGS (10)
  1. EFFEXOR XR [Suspect]
     Dates: end: 20040713
  2. MOCLOBEMIDE (MOCLOBEMIDE) [Suspect]
     Dosage: SEE IMAGE
     Route: 048
     Dates: start: 20040702, end: 20040705
  3. MOCLOBEMIDE (MOCLOBEMIDE) [Suspect]
     Dosage: SEE IMAGE
     Route: 048
     Dates: start: 20040706, end: 20040713
  4. HALOPERIDOL [Concomitant]
  5. SIMVASTATIN [Concomitant]
  6. COGENTIN [Concomitant]
  7. RAMIPRIL [Concomitant]
  8. CARVEDILOL [Concomitant]
  9. ACETYLSALICYLIC ACID SRT [Concomitant]
  10. HALOPERIDOL [Concomitant]

REACTIONS (5)
  - DECREASED INTEREST [None]
  - LETHARGY [None]
  - MEDICATION ERROR [None]
  - MUSCLE TWITCHING [None]
  - SEROTONIN SYNDROME [None]
